FAERS Safety Report 14325736 (Version 3)
Quarter: 2018Q3

REPORT INFORMATION
  Report Type: Spontaneous
  Country: FR (occurrence: FR)
  Receive Date: 20171226
  Receipt Date: 20180723
  Transmission Date: 20181010
  Serious: Yes (Other)
  Sender: FDA-Public Use
  Company Number: FR-MYLANLABS-2017M1081887

PATIENT
  Age: 79 Year
  Sex: Female
  Weight: 57 kg

DRUGS (28)
  1. ONDANSETRON [Suspect]
     Active Substance: ONDANSETRON
     Indication: PROPHYLAXIS OF NAUSEA AND VOMITING
     Dosage: 8 MG, ONE IN ONE CYCLE
     Dates: start: 20161215
  2. ENDOXAN                            /00021101/ [Suspect]
     Active Substance: CYCLOPHOSPHAMIDE
     Indication: MANTLE CELL LYMPHOMA STAGE IV
     Dosage: 1260 MG, ONCE
     Dates: start: 20161215
  3. POLARAMINE [Suspect]
     Active Substance: DEXCHLORPHENIRAMINE MALEATE
     Indication: MANTLE CELL LYMPHOMA STAGE IV
     Dosage: 8 MG, ONCE
     Route: 042
     Dates: start: 20161215
  4. VINCRISTINE [Suspect]
     Active Substance: VINCRISTINE
     Indication: DRUG TOXICITY PROPHYLAXIS
     Dosage: 2 MG, ONCE
     Route: 042
     Dates: start: 20161215
  5. MABTHERA [Suspect]
     Active Substance: RITUXIMAB
     Indication: MANTLE CELL LYMPHOMA STAGE IV
     Dosage: 600 MG,ONE IN ONE CYCLE
     Dates: start: 20161215
  6. BACTRIM [Concomitant]
     Active Substance: SULFAMETHOXAZOLE\TRIMETHOPRIM
     Indication: PRODUCT USED FOR UNKNOWN INDICATION
     Dosage: 1 DF, TIW
     Route: 048
     Dates: start: 20161215
  7. DOXORUBICIN TEVA [Suspect]
     Active Substance: DOXORUBICIN
     Indication: MANTLE CELL LYMPHOMA STAGE IV
     Dosage: 84 MG, ONCE
     Dates: start: 20161215
  8. POLARAMINE [Suspect]
     Active Substance: DEXCHLORPHENIRAMINE MALEATE
     Indication: PROPHYLAXIS OF NAUSEA AND VOMITING
     Dosage: 2 MG, ONCE
     Route: 042
     Dates: start: 20161215
  9. POLARAMINE [Suspect]
     Active Substance: DEXCHLORPHENIRAMINE MALEATE
     Indication: DRUG TOXICITY PROPHYLAXIS
     Dosage: 1200, ONCE
     Route: 042
     Dates: start: 20161215
  10. VINCRISTINE [Suspect]
     Active Substance: VINCRISTINE
     Indication: PROPHYLAXIS OF NAUSEA AND VOMITING
     Dosage: 1200 MG, ONCE
     Route: 042
     Dates: start: 20161215
  11. GLICLAZIDE [Concomitant]
     Active Substance: GLICLAZIDE
     Dosage: 20 MG, QD
     Route: 048
  12. SPECIAFOLDINE [Concomitant]
     Active Substance: FOLIC ACID
     Indication: PRODUCT USED FOR UNKNOWN INDICATION
     Dosage: 10 MG, QD
     Route: 048
     Dates: start: 20161215
  13. MESNA. [Suspect]
     Active Substance: MESNA
     Indication: DRUG TOXICITY PROPHYLAXIS
     Dosage: 1200 MG, ONCE
     Dates: start: 20161215
  14. GLICLAZIDE [Concomitant]
     Active Substance: GLICLAZIDE
     Dosage: 500 MG, BID
  15. VALSARTAN. [Concomitant]
     Active Substance: VALSARTAN
     Indication: PRODUCT USED FOR UNKNOWN INDICATION
     Dosage: 160 MG, QD
     Route: 048
  16. GLICLAZIDE [Concomitant]
     Active Substance: GLICLAZIDE
     Indication: PRODUCT USED FOR UNKNOWN INDICATION
     Dosage: 500 MG, BID
     Route: 048
     Dates: start: 20161215
  17. GLICLAZIDE [Concomitant]
     Active Substance: GLICLAZIDE
     Dosage: 12 MG, QD
     Route: 048
  18. BACTRIM [Concomitant]
     Active Substance: SULFAMETHOXAZOLE\TRIMETHOPRIM
     Dosage: 3 DF, QW
     Route: 048
     Dates: start: 20161215
  19. VALACYCLOVIR HYDROCHLORIDE. [Concomitant]
     Active Substance: VALACYCLOVIR HYDROCHLORIDE
     Indication: PRODUCT USED FOR UNKNOWN INDICATION
     Dosage: 500 MG, QD
     Route: 048
     Dates: start: 20161215
  20. GLICLAZIDE [Concomitant]
     Active Substance: GLICLAZIDE
     Dosage: 60 MG, QD
     Route: 048
  21. POLARAMINE [Suspect]
     Active Substance: DEXCHLORPHENIRAMINE MALEATE
     Indication: ALLERGY PROPHYLAXIS
     Dosage: 10 MG, ONCE
     Route: 042
     Dates: start: 20161215, end: 20161215
  22. VINCRISTINE [Suspect]
     Active Substance: VINCRISTINE
     Indication: MANTLE CELL LYMPHOMA STAGE IV
     Dosage: 8 MG, ONCE
     Route: 042
     Dates: start: 20161215
  23. GLICLAZIDE [Concomitant]
     Active Substance: GLICLAZIDE
     Dosage: 500 MG, QD
     Route: 048
     Dates: start: 20161215
  24. METFORMIN [Concomitant]
     Active Substance: METFORMIN HYDROCHLORIDE
     Indication: PRODUCT USED FOR UNKNOWN INDICATION
     Dosage: 500 MG, BID
     Route: 048
  25. KARDEGIC [Concomitant]
     Active Substance: ASPIRIN DL-LYSINE
     Indication: PRODUCT USED FOR UNKNOWN INDICATION
     Dosage: 160 MG, QD
     Route: 048
  26. GLICLAZIDE [Concomitant]
     Active Substance: GLICLAZIDE
     Dosage: 160 MG, QD
     Route: 048
  27. HYDROCHLOROTHIAZIDE. [Concomitant]
     Active Substance: HYDROCHLOROTHIAZIDE
     Indication: PRODUCT USED FOR UNKNOWN INDICATION
     Dosage: 12 MG, QD
     Route: 048
  28. PRAVASTATIN SODIUM. [Concomitant]
     Active Substance: PRAVASTATIN SODIUM
     Indication: PRODUCT USED FOR UNKNOWN INDICATION
     Dosage: 20 MG, QD
     Route: 048

REACTIONS (1)
  - Polyarthritis [Recovered/Resolved]

NARRATIVE: CASE EVENT DATE: 201612
